FAERS Safety Report 18438128 (Version 1)
Quarter: 2020Q4

REPORT INFORMATION
  Report Type: Report from Study
  Country: DE (occurrence: DE)
  Receive Date: 20201028
  Receipt Date: 20201028
  Transmission Date: 20210114
  Serious: Yes (Other)
  Sender: FDA-Public Use
  Company Number: DE-JNJFOC-20201040381

PATIENT
  Age: 34 Year
  Sex: Male
  Weight: 70 kg

DRUGS (1)
  1. REMICADE [Suspect]
     Active Substance: INFLIXIMAB
     Indication: CROHN^S DISEASE
     Route: 042
     Dates: start: 201108, end: 201209

REACTIONS (4)
  - Cutaneous sarcoidosis [Unknown]
  - Crohn^s disease [Unknown]
  - Tuberculosis [Unknown]
  - Intestinal fistula [Unknown]

NARRATIVE: CASE EVENT DATE: 2014
